FAERS Safety Report 7864632-0 (Version None)
Quarter: 2011Q4

REPORT INFORMATION
  Report Type: 
  Country: None (occurrence: None)
  Receive Date: 20111028
  Receipt Date: 20111020
  Transmission Date: 20120403
  Serious: Yes (Death, Hospitalization)
  Sender: FDA-Public Use
  Company Number: FR-MILLENNIUM PHARMACEUTICALS, INC.-2011-05105

PATIENT

DRUGS (9)
  1. PREDNISONE [Concomitant]
     Dosage: 20 MG, UNK
  2. ASPEGIC 325 [Concomitant]
     Dosage: 100 MG, UNK
  3. DEXAMETHASONE [Suspect]
     Indication: MULTIPLE MYELOMA
     Dosage: 20 MG, UNK
     Route: 048
     Dates: start: 20110413, end: 20110708
  4. ALKERAN [Concomitant]
  5. VELCADE [Suspect]
     Indication: MULTIPLE MYELOMA
     Dosage: 2 MG, UNK
     Route: 042
     Dates: start: 20110413, end: 20110706
  6. BENDAMUSTINE [Suspect]
     Indication: MULTIPLE MYELOMA
     Dosage: 109 MG, UNK
     Route: 042
     Dates: start: 20110413, end: 20110706
  7. ZOMETA [Concomitant]
     Dosage: 4 MG, UNK
  8. NEXIUM [Concomitant]
  9. THALIDOMIDE [Concomitant]
     Dosage: UNK

REACTIONS (3)
  - LUNG DISORDER [None]
  - DISEASE PROGRESSION [None]
  - PULMONARY OEDEMA [None]
